FAERS Safety Report 7603347-0 (Version None)
Quarter: 2011Q3

REPORT INFORMATION
  Report Type: 
  Country: None (occurrence: None)
  Receive Date: 20110712
  Receipt Date: 20110630
  Transmission Date: 20111222
  Serious: Yes (Other)
  Sender: FDA-Public Use
  Company Number: PHHY2011DE58193

PATIENT
  Age: 58 Year
  Sex: Female

DRUGS (3)
  1. AREDIA [Suspect]
     Dates: start: 20001101, end: 20021201
  2. ZOMETA [Suspect]
     Dosage: UNK
     Dates: start: 20021201, end: 20070401
  3. CORTISONE ACETATE [Concomitant]

REACTIONS (1)
  - OSTEONECROSIS OF JAW [None]
